FAERS Safety Report 5029363-3 (Version None)
Quarter: 2006Q2

REPORT INFORMATION
  Report Type: 
  Country: None (occurrence: None)
  Receive Date: 20060614
  Receipt Date: 20060609
  Transmission Date: 20061013
  Serious: Yes (Other)
  Sender: FDA-Public Use
  Company Number: 002#1#2005-00346

PATIENT
  Age: 62 Year
  Sex: Male

DRUGS (1)
  1. EDEX [Suspect]
     Indication: ERECTILE DYSFUNCTION
     Dosage: 10MCG, LASNEC, INTRACAVERNOUS
     Route: 017

REACTIONS (1)
  - DEVICE BREAKAGE [None]
